FAERS Safety Report 15424929 (Version 1)
Quarter: 2018Q4

REPORT INFORMATION
  Report Type: Spontaneous
  Country: NG (occurrence: NG)
  Receive Date: 20180925
  Receipt Date: 20180925
  Transmission Date: 20190204
  Serious: Yes (Life-Threatening, Hospitalization, Other)
  Sender: FDA-Public Use
  Company Number: NG-FRESENIUS KABI-FK201809893

PATIENT
  Age: 31 Year
  Sex: Female
  Weight: 60 kg

DRUGS (14)
  1. TRAMADOL. [Concomitant]
     Active Substance: TRAMADOL
     Indication: ANALGESIC THERAPY
     Route: 042
  2. FLUPHENAZINE (MANUFACTURER UNKNOWN) [Suspect]
     Active Substance: FLUPHENAZINE
     Indication: DEPRESSION
  3. TRIHEXYPHENIDYL [Concomitant]
     Active Substance: TRIHEXYPHENIDYL
     Indication: ADJUSTMENT DISORDER
     Route: 048
  4. FLUPHENAZINE (MANUFACTURER UNKNOWN) [Suspect]
     Active Substance: FLUPHENAZINE
     Indication: ADJUSTMENT DISORDER
     Dosage: UNKNOWN
     Route: 030
  5. ISOFLURANE (MANUFACTURER UNKNOWN) [Suspect]
     Active Substance: ISOFLURANE
     Indication: MAINTENANCE OF ANAESTHESIA
     Dosage: ANAESTHESIA WAS MAINTAINED WITH ISOFLURANE IN OXYGEN-AIR MIXTURE
     Route: 065
  6. KETOROLAC [Concomitant]
     Active Substance: KETOROLAC\KETOROLAC TROMETHAMINE
     Indication: ANALGESIC THERAPY
     Route: 042
  7. AMITRIPTYLINE HYDROCHLORIDE. [Concomitant]
     Active Substance: AMITRIPTYLINE HYDROCHLORIDE
     Indication: DEPRESSION
  8. BUPIVACAINE (MANUFACTURER UNKNOWN) [Suspect]
     Active Substance: BUPIVACAINE
     Indication: PRODUCT USED FOR UNKNOWN INDICATION
     Route: 065
  9. PROPOFOL (MANUFACTURER UNKNOWN) [Suspect]
     Active Substance: PROPOFOL
     Indication: INDUCTION OF ANAESTHESIA
     Route: 042
  10. ATRACURIUM [Concomitant]
     Active Substance: ATRACURIUM
     Indication: NEUROMUSCULAR BLOCKING THERAPY
     Route: 042
  11. TRIHEXYPHENIDYL [Concomitant]
     Active Substance: TRIHEXYPHENIDYL
     Indication: DEPRESSION
  12. AMITRIPTYLINE HYDROCHLORIDE. [Concomitant]
     Active Substance: AMITRIPTYLINE HYDROCHLORIDE
     Indication: ADJUSTMENT DISORDER
     Route: 048
  13. SUXAMETHONIUM [Concomitant]
     Active Substance: SUCCINYLCHOLINE
     Indication: ENDOTRACHEAL INTUBATION
     Route: 042
  14. PARACETAMOL [Concomitant]
     Active Substance: ACETAMINOPHEN
     Indication: ANALGESIC THERAPY
     Dosage: UNKNOWN
     Route: 042

REACTIONS (2)
  - Pneumonia aspiration [Recovering/Resolving]
  - Neuroleptic malignant syndrome [Recovered/Resolved]
